FAERS Safety Report 6450147-3 (Version None)
Quarter: 2009Q4

REPORT INFORMATION
  Report Type: 
  Country: None (occurrence: None)
  Receive Date: 20091120
  Receipt Date: 20091120
  Transmission Date: 20100525
  Serious: No
  Sender: FDA-Public Use
  Company Number: None

PATIENT
  Age: 49 Year
  Sex: Male
  Weight: 49.9 kg

DRUGS (1)
  1. VORINOSTAT [Suspect]
     Indication: NEOPLASM
     Dosage: 200 MG EVERY DAY PO
     Route: 048
     Dates: start: 20090227, end: 20090303

REACTIONS (1)
  - ELECTROCARDIOGRAM QT PROLONGED [None]
